FAERS Safety Report 13673767 (Version 5)
Quarter: 2017Q3

REPORT INFORMATION
  Report Type: Spontaneous
  Country: KR (occurrence: KR)
  Receive Date: 20170621
  Receipt Date: 20170825
  Transmission Date: 20171127
  Serious: Yes (Other)
  Sender: FDA-Public Use
  Company Number: KR-009507513-1702KOR002084

PATIENT
  Age: 50 Year
  Sex: Female
  Weight: 58 kg

DRUGS (45)
  1. ALOXI [Concomitant]
     Active Substance: PALONOSETRON HYDROCHLORIDE
     Dosage: 0.25 MG, ONCE
     Route: 042
     Dates: start: 20160719, end: 20160719
  2. NORVASC [Concomitant]
     Active Substance: AMLODIPINE BESYLATE
     Indication: HYPERTENSION
     Dosage: 5 MG (1 TABLET), QD
     Route: 048
     Dates: start: 20160611
  3. MACPERAN [Concomitant]
     Active Substance: METOCLOPRAMIDE HYDROCHLORIDE
     Dosage: 1 TABLET, TID
     Route: 048
     Dates: start: 20160812, end: 20160816
  4. MACPERAN [Concomitant]
     Active Substance: METOCLOPRAMIDE HYDROCHLORIDE
     Dosage: 10 MG, TID (2 TIMES ADMINISTERED ON 21-JUL-2016)
     Route: 042
     Dates: start: 20160719, end: 20160721
  5. TRIDOL (TRAMADOL HYDROCHLORIDE) [Concomitant]
     Dosage: 1 ML, ONCE, STRENGTH: 50 MG/ML
     Route: 042
     Dates: start: 20160610, end: 20160610
  6. AD MYCIN VIAL [Concomitant]
     Indication: INVASIVE DUCTAL BREAST CARCINOMA
     Dosage: 94 MG, ONCE (CYCLE 1, STRENGTH: 50MG/25ML)
     Route: 042
     Dates: start: 20160607, end: 20160607
  7. CRAVIT [Concomitant]
     Active Substance: LEVOFLOXACIN
     Indication: INFECTION PROPHYLAXIS
     Dosage: 750 MG, QD
     Route: 042
     Dates: start: 20160606, end: 20160608
  8. EMEND (FOSAPREPITANT DIMEGLUMINE) [Suspect]
     Active Substance: FOSAPREPITANT DIMEGLUMINE
     Dosage: 150 MG, ONCE
     Route: 042
     Dates: start: 20160628, end: 20160628
  9. AD MYCIN VIAL [Concomitant]
     Dosage: 94 MG, ONCE (CYCLE 4, STRENGTH: 50MG/25ML)
     Route: 042
     Dates: start: 20160810, end: 20160810
  10. ENDOXAN [Concomitant]
     Active Substance: CYCLOPHOSPHAMIDE
     Dosage: 948 MG, ONCE (CYCLE 2)
     Route: 042
     Dates: start: 20160628, end: 20160628
  11. ENDOXAN [Concomitant]
     Active Substance: CYCLOPHOSPHAMIDE
     Dosage: 948 MG, ONCE (CYCLE 3)
     Route: 042
     Dates: start: 20160719, end: 20160719
  12. LEGALON [Concomitant]
     Active Substance: MILK THISTLE
     Indication: PROPHYLAXIS
     Dosage: 140 MG (1 CAPSULE), BID (1 TIME ADMINISTERED ON 03-JUN-2016 AND ON 11-JUN-2016)
     Route: 048
     Dates: start: 20160530
  13. FULLGRAM CAPSULES [Concomitant]
     Indication: INFECTION PROPHYLAXIS
     Dosage: 2 CAPSULES, TID (1 TIME ADMINISTERED ON 02-JUN-2016)
     Route: 048
     Dates: start: 20160530, end: 20160602
  14. MACPERAN [Concomitant]
     Active Substance: METOCLOPRAMIDE HYDROCHLORIDE
     Dosage: 1 TABLET, TID
     Route: 048
     Dates: start: 20160630, end: 20160704
  15. MACPERAN [Concomitant]
     Active Substance: METOCLOPRAMIDE HYDROCHLORIDE
     Indication: PROPHYLAXIS
     Dosage: 10 MG, QD
     Route: 042
     Dates: start: 20160608, end: 20160610
  16. EMEND (FOSAPREPITANT DIMEGLUMINE) [Suspect]
     Active Substance: FOSAPREPITANT DIMEGLUMINE
     Dosage: 150 MG, ONCE
     Route: 042
     Dates: start: 20160719, end: 20160719
  17. ENDOXAN [Concomitant]
     Active Substance: CYCLOPHOSPHAMIDE
     Indication: INVASIVE DUCTAL BREAST CARCINOMA
     Dosage: 948 MG, ONCE (CYCLE 1)
     Route: 042
     Dates: start: 20160607, end: 20160607
  18. ENDOXAN [Concomitant]
     Active Substance: CYCLOPHOSPHAMIDE
     Dosage: 948 MG, ONCE (CYCLE 4)
     Route: 042
     Dates: start: 20160810, end: 20160810
  19. ALOXI [Concomitant]
     Active Substance: PALONOSETRON HYDROCHLORIDE
     Indication: PROPHYLAXIS OF NAUSEA AND VOMITING
     Dosage: 0.25 MG, ONCE
     Route: 042
     Dates: start: 20160607, end: 20160607
  20. MACPERAN [Concomitant]
     Active Substance: METOCLOPRAMIDE HYDROCHLORIDE
     Indication: PROPHYLAXIS AGAINST GASTROINTESTINAL ULCER
     Dosage: 1 TABLET, TID
     Route: 048
     Dates: start: 20160611, end: 20160615
  21. VANCOCIN [Concomitant]
     Active Substance: VANCOMYCIN HYDROCHLORIDE
     Indication: INFECTION PROPHYLAXIS
     Dosage: 1 G, QD
     Route: 042
     Dates: start: 20160603, end: 20160604
  22. MACPERAN [Concomitant]
     Active Substance: METOCLOPRAMIDE HYDROCHLORIDE
     Dosage: 1 TABLET, TID
     Route: 048
     Dates: start: 20160721, end: 20160725
  23. TYLENOL [Concomitant]
     Active Substance: ACETAMINOPHEN
     Dosage: 650 MG (1 TABLET), QD (NOT ADMINISTRATED ON 11-AUG-2016)
     Route: 048
     Dates: start: 20160810, end: 20160823
  24. GRASIN [Concomitant]
     Dosage: 300 MICROGRAM, ONCE
     Route: 042
     Dates: start: 20160708, end: 20160708
  25. AD MYCIN VIAL [Concomitant]
     Dosage: 94 MG, ONCE (CYCLE 2, STRENGTH: 50MG/25ML)
     Route: 042
     Dates: start: 20160628, end: 20160628
  26. CURAN [Concomitant]
     Active Substance: RANITIDINE HYDROCHLORIDE
     Indication: PROPHYLAXIS
     Dosage: 150 MG (1 TABLET), QD
     Route: 048
     Dates: start: 20160607, end: 20160608
  27. CURAN [Concomitant]
     Active Substance: RANITIDINE HYDROCHLORIDE
     Dosage: 150 MG (1 TABLET), QD (2 TIMES ADMINISTERED FROM 21-JUL-2016 TO 30-JUL-2016)
     Route: 048
     Dates: start: 20160719, end: 20160730
  28. DAEWON ES [Concomitant]
     Indication: DECREASED APPETITE
     Dosage: 5 ML, QD
     Route: 048
     Dates: start: 20160608, end: 20160610
  29. TYLENOL [Concomitant]
     Active Substance: ACETAMINOPHEN
     Indication: PAIN PROPHYLAXIS
     Dosage: 650 MG (1 TABLET), QD
     Route: 048
     Dates: start: 20160608, end: 20160608
  30. GRASIN [Concomitant]
     Indication: PROPHYLAXIS
     Dosage: 300 MICROGRAM, ONCE
     Route: 042
     Dates: start: 20160616, end: 20160616
  31. GRASIN [Concomitant]
     Dosage: 300 MICROGRAM, ONCE
     Route: 042
     Dates: start: 20160822, end: 20160822
  32. MACPERAN [Concomitant]
     Active Substance: METOCLOPRAMIDE HYDROCHLORIDE
     Dosage: 10 MG, BID (3 TIMES ADMINISTERED ON 29-JUN-2016, 1 TIME ADMINISTERED ON 30-JUN-2016)
     Route: 042
     Dates: start: 20160628, end: 20160630
  33. TRIDOL (TRAMADOL HYDROCHLORIDE) [Concomitant]
     Indication: CANCER PAIN
     Dosage: 1 ML, BID, STRENGTH: 50 MG/ML
     Route: 042
     Dates: start: 20160603, end: 20160604
  34. EMEND (FOSAPREPITANT DIMEGLUMINE) [Suspect]
     Active Substance: FOSAPREPITANT DIMEGLUMINE
     Indication: PROPHYLAXIS OF NAUSEA AND VOMITING
     Dosage: 150 MG, ONCE
     Route: 042
     Dates: start: 20160607, end: 20160607
  35. AD MYCIN VIAL [Concomitant]
     Dosage: 94 MG, ONCE (CYCLE 3, STRENGTH: 50MG/25ML)
     Route: 042
     Dates: start: 20160719, end: 20160719
  36. ALOXI [Concomitant]
     Active Substance: PALONOSETRON HYDROCHLORIDE
     Dosage: 0.25 MG, ONCE
     Route: 042
     Dates: start: 20160810, end: 20160810
  37. URSA TABLETS [Concomitant]
     Indication: PROPHYLAXIS
     Dosage: 200 MG (1 TABLET), TID (1 TIME ADMINISTERED ON 02-JUN-2016 AND 11-JUN-2016)
     Route: 048
     Dates: start: 20160602, end: 20160611
  38. AMLODIPINE BESYLATE. [Concomitant]
     Active Substance: AMLODIPINE BESYLATE
     Indication: HYPERTENSION
     Dosage: 1 TABLET, QD
     Route: 048
     Dates: start: 20160603, end: 20160611
  39. CURAN [Concomitant]
     Active Substance: RANITIDINE HYDROCHLORIDE
     Dosage: 150 MG (1 TABLET), BID
     Route: 048
     Dates: start: 20160628, end: 20160704
  40. UNASYN [Concomitant]
     Active Substance: AMPICILLIN SODIUM\SULBACTAM SODIUM
     Indication: INFECTION PROPHYLAXIS
     Dosage: 3 VIAL, QID (1 TIME ADMINISTERED ON 08-JUN-2016 AND ON 11-JUN-2016)
     Route: 042
     Dates: start: 20160608, end: 20160611
  41. EMEND (FOSAPREPITANT DIMEGLUMINE) [Suspect]
     Active Substance: FOSAPREPITANT DIMEGLUMINE
     Dosage: 150 MG, ONCE
     Route: 042
     Dates: start: 20160810, end: 20160810
  42. ALOXI [Concomitant]
     Active Substance: PALONOSETRON HYDROCHLORIDE
     Dosage: 0.25 MG, ONCE
     Route: 042
     Dates: start: 20160628, end: 20160628
  43. CRAVIT [Concomitant]
     Active Substance: LEVOFLOXACIN
     Indication: INFECTION PROPHYLAXIS
     Dosage: 500 MG (1 TABLET), QD
     Route: 048
     Dates: start: 20160611, end: 20160619
  44. CURAN [Concomitant]
     Active Substance: RANITIDINE HYDROCHLORIDE
     Dosage: 150 MG (1 TABLET), QD
     Route: 048
     Dates: start: 20160810, end: 20160811
  45. MACPERAN [Concomitant]
     Active Substance: METOCLOPRAMIDE HYDROCHLORIDE
     Dosage: 10 MG, BID (1 TIME ADMINISTERED ON 12-AUG-2016)
     Route: 042
     Dates: start: 20160810, end: 20160812

REACTIONS (4)
  - Asthenia [Recovered/Resolved]
  - Drug ineffective [Unknown]
  - Constipation [Recovered/Resolved]
  - Neutrophil count decreased [Recovered/Resolved]

NARRATIVE: CASE EVENT DATE: 2016
